FAERS Safety Report 11227419 (Version 2)
Quarter: 2015Q3

REPORT INFORMATION
  Report Type: Report from Study
  Country: DE (occurrence: DE)
  Receive Date: 20150630
  Receipt Date: 20150826
  Transmission Date: 20151125
  Serious: Yes (Other)
  Sender: FDA-Public Use
  Company Number: PHHY2015DE031927

PATIENT
  Age: 46 Year
  Sex: Female
  Weight: 50 kg

DRUGS (4)
  1. ZYKADIA [Suspect]
     Active Substance: CERITINIB
     Dosage: UNK
     Route: 048
     Dates: start: 20150215
  2. ZYKADIA [Suspect]
     Active Substance: CERITINIB
     Indication: NON-SMALL CELL LUNG CANCER METASTATIC
     Dosage: 750 MG, UNK
     Route: 048
     Dates: start: 20140429, end: 20140528
  3. ZYKADIA [Suspect]
     Active Substance: CERITINIB
     Dosage: 600 MG, UNK
     Route: 048
     Dates: start: 20140610, end: 20140709
  4. ZYKADIA [Suspect]
     Active Substance: CERITINIB
     Dosage: 450 MG, QD
     Route: 048
     Dates: start: 20140718, end: 20150204

REACTIONS (16)
  - Pneumonia [Recovering/Resolving]
  - Malignant neoplasm progression [Unknown]
  - Dyspnoea [Unknown]
  - Fatigue [Unknown]
  - Malaise [Unknown]
  - Thrombocytosis [Unknown]
  - Dysphagia [Recovered/Resolved]
  - Lung infiltration [Recovering/Resolving]
  - Cough [Recovered/Resolved]
  - Anaemia [Recovered/Resolved]
  - Non-small cell lung cancer metastatic [Unknown]
  - Respiratory rate increased [Unknown]
  - Wheezing [Unknown]
  - Crepitations [Unknown]
  - Pneumonitis [Recovered/Resolved]
  - General physical health deterioration [Unknown]

NARRATIVE: CASE EVENT DATE: 20140910
